FAERS Safety Report 6375719-6 (Version None)
Quarter: 2009Q3

REPORT INFORMATION
  Report Type: 
  Country: None (occurrence: None)
  Receive Date: 20090922
  Receipt Date: 20090922
  Transmission Date: 20100115
  Serious: No
  Sender: FDA-Public Use
  Company Number: None

PATIENT
  Age: 31 Year
  Sex: Female
  Weight: 54.8852 kg

DRUGS (1)
  1. CLARAVIS [Suspect]
     Indication: ACNE
     Dosage: 40MG,50MG,60MG,70MG,80MG,100MG 1QD PO
     Route: 048
     Dates: start: 20071102, end: 20080615

REACTIONS (33)
  - ALOPECIA [None]
  - AMNESIA [None]
  - ARTHRALGIA [None]
  - ARTHROPATHY [None]
  - BLOOD CHOLESTEROL INCREASED [None]
  - BLOOD GLUCOSE INCREASED [None]
  - BLOOD IRON DECREASED [None]
  - DECREASED APPETITE [None]
  - DEPRESSION [None]
  - DISCOMFORT [None]
  - DISTURBANCE IN ATTENTION [None]
  - DIZZINESS [None]
  - DRUG INEFFECTIVE [None]
  - DRY EYE [None]
  - DYSPNOEA [None]
  - EYELID OEDEMA [None]
  - FATIGUE [None]
  - FLUSHING [None]
  - FUNGAL INFECTION [None]
  - HEADACHE [None]
  - INSOMNIA [None]
  - IRRITABILITY [None]
  - MYODESOPSIA [None]
  - NODULE [None]
  - OSTEOPENIA [None]
  - SKIN ATROPHY [None]
  - SKIN BURNING SENSATION [None]
  - SKIN EXFOLIATION [None]
  - SUICIDAL IDEATION [None]
  - TENDON DISORDER [None]
  - THROMBOSIS [None]
  - THYROID FUNCTION TEST ABNORMAL [None]
  - VITAMIN D DEFICIENCY [None]
